FAERS Safety Report 8983792 (Version 1)
Quarter: 2012Q4

REPORT INFORMATION
  Report Type: Report from Study
  Country: GB (occurrence: GB)
  Receive Date: 20121224
  Receipt Date: 20121224
  Transmission Date: 20130627
  Serious: Yes (Hospitalization)
  Sender: FDA-Public Use
  Company Number: GB-ROCHE-1168776

PATIENT
  Age: 61 Year
  Sex: Female
  Weight: 71 kg

DRUGS (3)
  1. RITUXIMAB [Suspect]
     Indication: RHEUMATOID ARTHRITIS
     Dosage: date of last dose prior to SAE 03/May/2012
     Route: 065
     Dates: start: 20071018
  2. METHOTREXATE [Concomitant]
  3. CYCLOSPORINE [Concomitant]
     Route: 065
     Dates: start: 20060710

REACTIONS (1)
  - Bladder neoplasm [Unknown]
